FAERS Safety Report 21466300 (Version 1)
Quarter: 2022Q4

REPORT INFORMATION
  Report Type: Spontaneous
  Country: US (occurrence: None)
  Receive Date: 20221017
  Receipt Date: 20221017
  Transmission Date: 20230112
  Serious: Yes (Other)
  Sender: FDA-Public Use
  Company Number: US-ROCHE-3200857

PATIENT
  Sex: Female

DRUGS (2)
  1. ESBRIET [Suspect]
     Active Substance: PIRFENIDONE
     Indication: Idiopathic pulmonary fibrosis
     Route: 048
     Dates: start: 20220930
  2. OXYGEN [Concomitant]
     Active Substance: OXYGEN
     Dates: start: 20220901

REACTIONS (5)
  - Dyspnoea [Not Recovered/Not Resolved]
  - Heart rate increased [Unknown]
  - Dependence on oxygen therapy [Not Recovered/Not Resolved]
  - Fatigue [Unknown]
  - Cough [Unknown]
